FAERS Safety Report 11804122 (Version 1)
Quarter: 2015Q4

REPORT INFORMATION
  Report Type: Spontaneous
  Country: BR (occurrence: BR)
  Receive Date: 20151204
  Receipt Date: 20151204
  Transmission Date: 20160305
  Serious: Yes (Hospitalization)
  Sender: FDA-Public Use
  Company Number: BR-PFIZER INC-2015418496

PATIENT
  Age: 91 Year
  Sex: Male

DRUGS (1)
  1. CARDURAN XL [Suspect]
     Active Substance: DOXAZOSIN MESYLATE
     Indication: PROSTATIC DISORDER
     Dosage: 4 MG (1 TABLET), AT NIGHT
     Route: 048
     Dates: start: 2011

REACTIONS (2)
  - Prostatomegaly [Not Recovered/Not Resolved]
  - Haemorrhage [Not Recovered/Not Resolved]
